FAERS Safety Report 15588145 (Version 2)
Quarter: 2021Q2

REPORT INFORMATION
  Report Type: Report from Study
  Country: US (occurrence: US)
  Receive Date: 20181105
  Receipt Date: 20210602
  Transmission Date: 20210716
  Serious: Yes (Hospitalization)
  Sender: FDA-Public Use
  Company Number: US-SHIRE-US201842598

PATIENT
  Age: 56 Year
  Sex: Female

DRUGS (4)
  1. TEDUGLUTIDE [Suspect]
     Active Substance: TEDUGLUTIDE
     Indication: SHORT-BOWEL SYNDROME
     Dosage: 0.270 INTERNATIONAL UNIT
     Route: 065
     Dates: start: 20180909
  2. TEDUGLUTIDE [Suspect]
     Active Substance: TEDUGLUTIDE
     Indication: SHORT-BOWEL SYNDROME
     Dosage: 0.270 INTERNATIONAL UNIT
     Route: 065
     Dates: start: 20180909
  3. TEDUGLUTIDE [Suspect]
     Active Substance: TEDUGLUTIDE
     Indication: SHORT-BOWEL SYNDROME
     Dosage: 0.270 INTERNATIONAL UNIT
     Route: 065
     Dates: start: 20180909
  4. TEDUGLUTIDE [Suspect]
     Active Substance: TEDUGLUTIDE
     Indication: SHORT-BOWEL SYNDROME
     Dosage: 0.270 INTERNATIONAL UNIT
     Route: 065
     Dates: start: 20180909

REACTIONS (4)
  - Abdominal distension [Recovering/Resolving]
  - Gastric disorder [Unknown]
  - Product dose omission issue [Recovering/Resolving]
  - Abdominal pain upper [Recovering/Resolving]

NARRATIVE: CASE EVENT DATE: 20181022
